FAERS Safety Report 12917362 (Version 1)
Quarter: 2016Q4

REPORT INFORMATION
  Report Type: Spontaneous
  Country: US (occurrence: US)
  Receive Date: 20161104
  Receipt Date: 20161104
  Transmission Date: 20170207
  Serious: Yes (Other)
  Sender: FDA-Public Use
  Company Number: None

PATIENT
  Age: 24 Year
  Sex: Female
  Weight: 47.25 kg

DRUGS (3)
  1. PRENATAL VITAMINS [Concomitant]
     Active Substance: VITAMINS
  2. DICLOXACILLIN [Suspect]
     Active Substance: DICLOXACILLIN
     Indication: MASTITIS
     Dosage: QUANTITY:5 CAPSULE(S); 4 TIMES A DAY; ORAL?
     Route: 048
     Dates: start: 20161102, end: 20161104
  3. SERTRALINE [Concomitant]
     Active Substance: SERTRALINE HYDROCHLORIDE

REACTIONS (8)
  - Dysphonia [None]
  - Nausea [None]
  - Retching [None]
  - Dysphagia [None]
  - Abdominal pain upper [None]
  - Oesophageal pain [None]
  - Dyspnoea [None]
  - Cough [None]

NARRATIVE: CASE EVENT DATE: 20161104
